FAERS Safety Report 6048341-9 (Version None)
Quarter: 2009Q1

REPORT INFORMATION
  Report Type: 
  Country: None (occurrence: None)
  Receive Date: 20090123
  Receipt Date: 20090113
  Transmission Date: 20090719
  Serious: Yes (Hospitalization)
  Sender: FDA-Public Use
  Company Number: US-PFIZER INC-2007062918

PATIENT
  Age: 58 Year
  Sex: Male
  Weight: 102 kg

DRUGS (8)
  1. SUNITINIB MALATE [Suspect]
     Indication: METASTATIC RENAL CELL CARCINOMA
     Dosage: 37.5 MG, DAILY
     Route: 048
     Dates: start: 20070611, end: 20070710
  2. OXYCONTIN [Concomitant]
     Dosage: 10 MG, 3X/DAY
  3. PERCOCET [Concomitant]
     Dosage: UNK
  4. NEXIUM [Concomitant]
     Dosage: 40 MG, EVERY DAY
     Dates: start: 20070526
  5. FERROUS GLUCONATE [Concomitant]
     Dosage: 325 MG, EVERY DAY
     Dates: start: 20070526
  6. VALSARTAN [Concomitant]
     Dosage: 160 MG, EACH DAY
     Dates: end: 20070725
  7. IBUPROFEN [Concomitant]
     Dosage: 600 MG, AS NEEDED
  8. BETACAROTENE [Concomitant]

REACTIONS (3)
  - ARACHNOIDITIS [None]
  - HAEMOGLOBIN DECREASED [None]
  - SPINAL CORD COMPRESSION [None]
